FAERS Safety Report 8475425-8 (Version None)
Quarter: 2012Q2

REPORT INFORMATION
  Report Type: 
  Country: None (occurrence: None)
  Receive Date: 20120628
  Receipt Date: 20120621
  Transmission Date: 20120825
  Serious: Yes (Other)
  Sender: FDA-Public Use
  Company Number: AU-ROCHE-1081786

PATIENT
  Sex: Male

DRUGS (1)
  1. LUCENTIS [Suspect]
     Indication: AGE-RELATED MACULAR DEGENERATION
     Route: 050
     Dates: start: 20120601

REACTIONS (5)
  - COUGH [None]
  - EYE HAEMORRHAGE [None]
  - INFLUENZA [None]
  - EAR PAIN [None]
  - TYMPANIC MEMBRANE PERFORATION [None]
